FAERS Safety Report 7655554-9 (Version None)
Quarter: 2011Q3

REPORT INFORMATION
  Report Type: 
  Country: None (occurrence: None)
  Receive Date: 20110804
  Receipt Date: 20110801
  Transmission Date: 20111222
  Serious: Yes (Hospitalization)
  Sender: FDA-Public Use
  Company Number: US-BRISTOL-MYERS SQUIBB COMPANY-15822588

PATIENT
  Age: 73 Year
  Sex: Female

DRUGS (15)
  1. CISPLATIN [Suspect]
     Indication: NON-SMALL CELL LUNG CANCER
     Dosage: 1 DF = 120+88MG/M2
     Route: 042
     Dates: start: 20110428, end: 20110602
  2. ESTRING [Concomitant]
     Indication: HORMONE THERAPY
     Dosage: DOSE:90DAYS
  3. ATIVAN [Concomitant]
     Indication: ANXIETY
     Route: 048
  4. RAMIPRIL [Concomitant]
     Indication: HYPERTENSION
  5. SEREVENT [Concomitant]
     Indication: CHRONIC OBSTRUCTIVE PULMONARY DISEASE
  6. LIPITOR [Concomitant]
     Indication: BLOOD CHOLESTEROL INCREASED
  7. VINORELBINE [Suspect]
     Indication: NON-SMALL CELL LUNG CANCER
     Route: 042
     Dates: start: 20110428, end: 20110602
  8. EVISTA [Concomitant]
     Indication: OSTEOPOROSIS
  9. MIRTAZAPINE [Concomitant]
     Indication: DEPRESSION
  10. ACTONEL [Concomitant]
     Indication: OSTEOPOROSIS
  11. LEVOTHYROXINE SODIUM [Concomitant]
     Indication: HYPOTHYROIDISM
  12. ATENOLOL [Concomitant]
     Indication: HYPERTENSION
  13. CETUXIMAB [Suspect]
     Indication: NON-SMALL CELL LUNG CANCER
     Dosage: 1 DOSAGE FORM = 600 + 375MG/M2
     Route: 042
     Dates: start: 20110428, end: 20110602
  14. MIRACLE MOUTHWASH [Concomitant]
     Indication: STOMATITIS
     Dosage: Q4-6HRS
  15. ASPIRIN [Concomitant]

REACTIONS (3)
  - FATIGUE [None]
  - CLOSTRIDIUM DIFFICILE COLITIS [None]
  - DYSPNOEA [None]
